FAERS Safety Report 17230172 (Version 1)
Quarter: 2020Q1

REPORT INFORMATION
  Report Type: Spontaneous
  Country: JP (occurrence: JP)
  Receive Date: 20200103
  Receipt Date: 20200103
  Transmission Date: 20200409
  Serious: Yes (Other)
  Sender: FDA-Public Use
  Company Number: JP-JNJFOC-20191245586

PATIENT
  Sex: Male

DRUGS (2)
  1. XEPLION [Suspect]
     Active Substance: PALIPERIDONE PALMITATE
     Route: 030
  2. XEPLION [Suspect]
     Active Substance: PALIPERIDONE PALMITATE
     Indication: SCHIZOPHRENIA
     Route: 030
     Dates: start: 201911

REACTIONS (12)
  - Suicide attempt [Unknown]
  - Hallucination, auditory [Unknown]
  - Delusion [Unknown]
  - Off label use [Unknown]
  - Blood glucose increased [Unknown]
  - Hallucination, visual [Unknown]
  - Persecutory delusion [Unknown]
  - Malaise [Unknown]
  - Inappropriate schedule of product administration [Unknown]
  - Constipation [Unknown]
  - Insomnia [Unknown]
  - Sleep deficit [Unknown]
